FAERS Safety Report 6709242-3 (Version None)
Quarter: 2010Q2

REPORT INFORMATION
  Report Type: 
  Country: None (occurrence: None)
  Receive Date: 20100423
  Receipt Date: 20091130
  Transmission Date: 20101027
  Serious: Yes (Other)
  Sender: FDA-Public Use
  Company Number: WAES 0912USA00033

PATIENT
  Age: 4 Year
  Sex: Female

DRUGS (3)
  1. SINGULAIR [Suspect]
     Indication: HYPERSENSITIVITY
     Dosage: 5 MG/UNK/PO
     Dates: start: 20090201, end: 20091030
  2. KEFLEX [Concomitant]
  3. XYZAL [Concomitant]

REACTIONS (3)
  - CONVULSION [None]
  - OVERDOSE [None]
  - SINUSITIS [None]
